FAERS Safety Report 9524182 (Version 1)
Quarter: 2013Q3

REPORT INFORMATION
  Report Type: Spontaneous
  Country: DE (occurrence: DE)
  Receive Date: 20130916
  Receipt Date: 20130916
  Transmission Date: 20140515
  Serious: Yes (Disabling)
  Sender: FDA-Public Use
  Company Number: DE-MERCK-1309DEU005000

PATIENT
  Age: 69 Year
  Sex: Female

DRUGS (4)
  1. XELEVIA [Suspect]
     Indication: DIABETES MELLITUS
     Dosage: 100 MG, MILLIGRAM 1 DAY
     Route: 048
     Dates: start: 2010
  2. XELEVIA [Suspect]
     Dosage: 50 MG, QD
     Route: 048
     Dates: start: 2013
  3. KINZALKOMB [Suspect]
     Indication: HYPERTENSION
     Dosage: 40 MG, MILLIGRAM, 1 DAY
     Route: 048
     Dates: start: 2010
  4. DEKRISTOL [Suspect]
     Indication: VITAMIN D DEFICIENCY
     Dosage: 20000 UNK, UNK
     Route: 048
     Dates: start: 2010

REACTIONS (1)
  - Finger deformity [Unknown]
